FAERS Safety Report 9098452 (Version 2)
Quarter: 2013Q1

REPORT INFORMATION
  Report Type: Spontaneous
  Country: US (occurrence: US)
  Receive Date: 20130213
  Receipt Date: 20130318
  Transmission Date: 20140127
  Serious: Yes (Other)
  Sender: FDA-Public Use
  Company Number: PHEH2013US003365

PATIENT
  Sex: Male

DRUGS (1)
  1. TRILEPTAL [Suspect]
     Indication: EPILEPSY
     Dosage: 5 DF, BID
     Route: 048

REACTIONS (3)
  - Brain neoplasm [Unknown]
  - Convulsion [Unknown]
  - Drug ineffective [Unknown]
